FAERS Safety Report 16854603 (Version 1)
Quarter: 2019Q3

REPORT INFORMATION
  Report Type: Spontaneous
  Country: US (occurrence: US)
  Receive Date: 20190926
  Receipt Date: 20190926
  Transmission Date: 20191005
  Serious: No
  Sender: FDA-Public Use
  Company Number: US-BION-007701

PATIENT
  Age: 71 Year
  Sex: Female
  Weight: 79.38 kg

DRUGS (1)
  1. IMODIUM A-D [Suspect]
     Active Substance: LOPERAMIDE HYDROCHLORIDE
     Indication: DIARRHOEA
     Dosage: 2-3 TIMES DAILY
     Dates: end: 20181221

REACTIONS (3)
  - Dysphagia [Unknown]
  - Product packaging issue [Unknown]
  - Incorrect product administration duration [Not Recovered/Not Resolved]
